FAERS Safety Report 20206236 (Version 5)
Quarter: 2022Q3

REPORT INFORMATION
  Report Type: Report from Study
  Country: CA (occurrence: CA)
  Receive Date: 20211220
  Receipt Date: 20220707
  Transmission Date: 20221027
  Serious: Yes (Other)
  Sender: FDA-Public Use
  Company Number: CA-JNJFOC-20211136611

PATIENT
  Age: 19 Year
  Sex: Female

DRUGS (1)
  1. REMICADE [Suspect]
     Active Substance: INFLIXIMAB
     Indication: Crohn^s disease
     Dosage: ON 11-JAN-2022, THE PATIENT COMPLETED HER PARTIAL HARVEY-BRADSHAW AND RECEIVED HER 17TH INFUSION OF
     Route: 042
     Dates: start: 20200727

REACTIONS (9)
  - Haematochezia [Not Recovered/Not Resolved]
  - Flatulence [Not Recovered/Not Resolved]
  - Abdominal pain [Not Recovered/Not Resolved]
  - Pain [Unknown]
  - Haemorrhoidal haemorrhage [Recovered/Resolved]
  - Retching [Unknown]
  - Malaise [Unknown]
  - Nausea [Recovering/Resolving]
  - Diarrhoea [Unknown]

NARRATIVE: CASE EVENT DATE: 20211116
